FAERS Safety Report 13389745 (Version 1)
Quarter: 2017Q1

REPORT INFORMATION
  Report Type: Spontaneous
  Country: RU (occurrence: RU)
  Receive Date: 20170331
  Receipt Date: 20170331
  Transmission Date: 20170429
  Serious: Yes (Other)
  Sender: FDA-Public Use
  Company Number: RU-ASTRAZENECA-2017SE31954

PATIENT
  Age: 3 Year
  Sex: Female

DRUGS (1)
  1. PULMICORT RESPULES [Suspect]
     Active Substance: BUDESONIDE
     Indication: ASTHMA
     Dosage: 2.5 MILLIGRAMS DAILY THEN 1.0 MILLIGRAMS DAILY
     Route: 055

REACTIONS (1)
  - Diabetes mellitus [Not Recovered/Not Resolved]
